FAERS Safety Report 11999690 (Version 1)
Quarter: 2016Q1

REPORT INFORMATION
  Report Type: Report from Study
  Country: US (occurrence: US)
  Receive Date: 20160204
  Receipt Date: 20160204
  Transmission Date: 20160526
  Serious: Yes (Hospitalization, Other)
  Sender: FDA-Public Use
  Company Number: US-AMGEN-USASL2016011946

PATIENT
  Age: 45 Year
  Sex: Male

DRUGS (2)
  1. ENBREL [Suspect]
     Active Substance: ETANERCEPT
     Indication: PSORIATIC ARTHROPATHY
     Dosage: 50 MG, QWK
     Route: 065
  2. ENBREL [Suspect]
     Active Substance: ETANERCEPT
     Dosage: UNK
     Route: 065
     Dates: start: 20160121

REACTIONS (8)
  - Arthralgia [Unknown]
  - Hydrothorax [Unknown]
  - Pneumonia [Unknown]
  - Asthenia [Unknown]
  - Tongue injury [Unknown]
  - Generalised tonic-clonic seizure [Unknown]
  - Immune system disorder [Unknown]
  - Memory impairment [Unknown]
